FAERS Safety Report 23439135 (Version 1)
Quarter: 2024Q1

REPORT INFORMATION
  Report Type: Spontaneous
  Country: US (occurrence: US)
  Receive Date: 20240124
  Receipt Date: 20240124
  Transmission Date: 20240410
  Serious: No
  Sender: FDA-Public Use
  Company Number: US-PFIZER INC-202400021328

PATIENT
  Age: 31 Year
  Sex: Female

DRUGS (1)
  1. TESSALON [Suspect]
     Active Substance: BENZONATATE
     Indication: Cough
     Dosage: TAKE 1-2 CAPSULES BY MOUTH THREE TIMES A DAY AS NEEDED
     Route: 048

REACTIONS (1)
  - Eye swelling [Unknown]
